FAERS Safety Report 9224397 (Version 1)
Quarter: 2013Q1

REPORT INFORMATION
  Report Type: Spontaneous
  Country: US (occurrence: None)
  Receive Date: 20120914
  Receipt Date: 20120914
  Transmission Date: 20140127
  Serious: Yes (Other)
  Sender: FDA-Public Use
  Company Number: JPI-P-021062

PATIENT
  Age: 40 Year
  Sex: Female
  Weight: 78.93 kg

DRUGS (6)
  1. XYREM [Suspect]
     Indication: CATAPLEXY
     Route: 048
     Dates: start: 20120419, end: 201204
  2. BUPROPION HYDROCHLORIDE [Concomitant]
  3. CLONAZEPAM [Concomitant]
  4. AMPHETAMINE, DEXTROAMPHETAMINE MIXED SALTS [Concomitant]
  5. TRAZODONE [Concomitant]
  6. ZOLPIDEM TARTRATE [Concomitant]

REACTIONS (9)
  - Hypertension [None]
  - Poor quality sleep [None]
  - Nasopharyngitis [None]
  - Cough [None]
  - Rhinorrhoea [None]
  - Insomnia [None]
  - Fatigue [None]
  - Headache [None]
  - Dizziness [None]
